FAERS Safety Report 6336491-9 (Version None)
Quarter: 2009Q3

REPORT INFORMATION
  Report Type: 
  Country: None (occurrence: None)
  Receive Date: 20090901
  Receipt Date: 20090825
  Transmission Date: 20100115
  Serious: Yes (Other)
  Sender: FDA-Public Use
  Company Number: B0590561A

PATIENT
  Age: 68 Year
  Sex: Female

DRUGS (5)
  1. LAMICTAL [Suspect]
     Indication: DRUG USE FOR UNKNOWN INDICATION
     Route: 048
  2. ZOLOFT [Concomitant]
     Route: 048
  3. NESGEN [Concomitant]
     Route: 048
  4. FLUNITRAZEPAM [Concomitant]
     Route: 048
  5. EVAMYL [Concomitant]
     Route: 048

REACTIONS (1)
  - PARKINSON'S DISEASE [None]
